FAERS Safety Report 4869365-0 (Version None)
Quarter: 2005Q4

REPORT INFORMATION
  Report Type: 
  Country: None (occurrence: None)
  Receive Date: 20051230
  Receipt Date: 20051220
  Transmission Date: 20060501
  Serious: Yes (Hospitalization)
  Sender: FDA-Public Use
  Company Number: BR-NOVOPROD-249561

PATIENT
  Age: 33 Year
  Sex: Female

DRUGS (6)
  1. ACTRAPID [Suspect]
     Indication: DIABETES MELLITUS INSULIN-DEPENDENT
     Dosage: UNK, UNK
  2. ACTRAPID [Suspect]
     Dosage: 100 UNK, UNK
  3. ACTRAPID [Suspect]
     Dosage: 14 UNK, UNK
  4. NOVOLIN N [Suspect]
     Indication: DIABETES MELLITUS INSULIN-DEPENDENT
     Dosage: 30 IU, UNK
  5. LENTE PIF (B/P) [Suspect]
     Indication: DIABETES MELLITUS INSULIN-DEPENDENT
     Dosage: 58 IU, UNK
  6. LENTE PIF (B/P) [Suspect]
     Dosage: 28 UNK, UNK

REACTIONS (3)
  - INJECTION SITE REACTION [None]
  - TYPE III IMMUNE COMPLEX MEDIATED REACTION [None]
  - URTICARIA [None]
